FAERS Safety Report 7757853-9 (Version None)
Quarter: 2011Q3

REPORT INFORMATION
  Report Type: 
  Country: None (occurrence: None)
  Receive Date: 20110918
  Receipt Date: 20110906
  Transmission Date: 20111222
  Serious: Yes (Death, Other)
  Sender: FDA-Public Use
  Company Number: US-BRISTOL-MYERS SQUIBB COMPANY-16058174

PATIENT
  Age: 36 Year
  Sex: Male

DRUGS (1)
  1. CARMUSTINE [Suspect]
     Indication: ASTROCYTOMA
     Dosage: 3 SEPERTAE DOSES

REACTIONS (4)
  - ASTHENIA [None]
  - DEATH [None]
  - HYPOAESTHESIA [None]
  - NECROSIS [None]
